FAERS Safety Report 25013816 (Version 1)
Quarter: 2025Q1

REPORT INFORMATION
  Report Type: Spontaneous
  Country: US (occurrence: None)
  Receive Date: 20250226
  Receipt Date: 20250226
  Transmission Date: 20250408
  Serious: Yes (Life-Threatening, Hospitalization, Other)
  Sender: FDA-CTU
  Company Number: None

PATIENT
  Age: 58 Year
  Sex: Male
  Weight: 182 kg

DRUGS (9)
  1. DAPAGLIFLOZIN [Suspect]
     Active Substance: DAPAGLIFLOZIN
     Indication: Heart failure with reduced ejection fraction
     Dates: start: 20221201, end: 20241111
  2. VENTOLIN HFA [Concomitant]
     Active Substance: ALBUTEROL SULFATE
     Dates: start: 20240605
  3. amiodarone (PACERONE) tab [Concomitant]
     Dates: start: 20240515
  4. apixaban (ELIQUIS) tab [Concomitant]
     Dates: start: 20240724
  5. atorvastatin (LIPITOR) tab [Concomitant]
     Dates: start: 20240610
  6. furosemide (LASIX) tab [Concomitant]
     Dates: start: 20231109
  7. gabapentin (NEURONTIN) tab [Concomitant]
     Dates: start: 20241014
  8. lisinopril (PRINIVIL) tab [Concomitant]
     Dates: start: 20240724
  9. metoptolol XL (TOPROL-XL) tab [Concomitant]
     Dates: start: 20240501

REACTIONS (10)
  - Rhinovirus infection [None]
  - Chronic obstructive pulmonary disease [None]
  - Acute kidney injury [None]
  - Pneumonia [None]
  - Respiratory failure [None]
  - Scrotal swelling [None]
  - Oedema [None]
  - Scrotal abscess [None]
  - Fournier^s gangrene [None]
  - Debridement [None]

NARRATIVE: CASE EVENT DATE: 20241111
